FAERS Safety Report 4511592-6 (Version None)
Quarter: 2004Q4

REPORT INFORMATION
  Report Type: 
  Country: None (occurrence: None)
  Receive Date: 20041129
  Receipt Date: 20041012
  Transmission Date: 20050328
  Serious: Yes (Hospitalization)
  Sender: FDA-Public Use
  Company Number: US-BRISTOL-MYERS SQUIBB COMPANY-12728788

PATIENT
  Age: 61 Year
  Sex: Male
  Weight: 113 kg

DRUGS (3)
  1. ABILIFY [Suspect]
     Indication: MANIA
     Route: 048
  2. LOPRESSOR [Concomitant]
     Route: 048
  3. ASPIRIN [Concomitant]
     Route: 048

REACTIONS (1)
  - ATRIAL FIBRILLATION [None]
